FAERS Safety Report 8357075-7 (Version None)
Quarter: 2012Q2

REPORT INFORMATION
  Report Type: 
  Country: None (occurrence: None)
  Receive Date: 20120514
  Receipt Date: 20120507
  Transmission Date: 20120825
  Serious: Yes (Other)
  Sender: FDA-Public Use
  Company Number: US-BAYER-2012-005401

PATIENT
  Age: 16 Year
  Sex: Female
  Weight: 108.84 kg

DRUGS (5)
  1. VITAMIN D [Concomitant]
  2. ADIPEX [Concomitant]
  3. DROSPIRENONE AND ETHINYL ESTRADIOL [Suspect]
     Dosage: UNK
     Dates: start: 20100210
  4. YASMIN [Suspect]
     Dosage: UNK
     Dates: start: 20091015
  5. CYANOCOBALAMIN [Concomitant]

REACTIONS (2)
  - CHOLECYSTITIS [None]
  - PAIN [None]
